FAERS Safety Report 12901654 (Version 1)
Quarter: 2016Q4

REPORT INFORMATION
  Report Type: Spontaneous
  Country: CA (occurrence: CA)
  Receive Date: 20161102
  Receipt Date: 20161102
  Transmission Date: 20170207
  Serious: Yes (Disabling, Other)
  Sender: FDA-Public Use
  Company Number: CA-AMGEN-CANSP2016150949

PATIENT
  Age: 62 Year
  Sex: Female

DRUGS (2)
  1. METHOTREXATE. [Suspect]
     Active Substance: METHOTREXATE
     Indication: RHEUMATOID ARTHRITIS
     Dosage: 15 MG, QWK
     Route: 048
     Dates: start: 2013
  2. ENBREL [Suspect]
     Active Substance: ETANERCEPT
     Indication: RHEUMATOID ARTHRITIS
     Dosage: UNK
     Route: 065
     Dates: start: 2015

REACTIONS (4)
  - Disability [Not Recovered/Not Resolved]
  - Systemic lupus erythematosus [Unknown]
  - Anal incontinence [Unknown]
  - Influenza [Recovering/Resolving]

NARRATIVE: CASE EVENT DATE: 2016
